FAERS Safety Report 20867468 (Version 1)
Quarter: 2022Q2

REPORT INFORMATION
  Report Type: Spontaneous
  Country: US (occurrence: US)
  Receive Date: 20220524
  Receipt Date: 20220524
  Transmission Date: 20220720
  Serious: No
  Sender: FDA-Public Use
  Company Number: US-KVK-TECH, INC-20210600080

PATIENT

DRUGS (1)
  1. URSODIOL CAPSULES [Suspect]
     Active Substance: URSODIOL
     Indication: Primary biliary cholangitis
     Dosage: UNKNOWN

REACTIONS (7)
  - Malaise [Unknown]
  - Parosmia [Unknown]
  - Tongue discolouration [Unknown]
  - Plicated tongue [Unknown]
  - Paraesthesia oral [Unknown]
  - Rhinorrhoea [Unknown]
  - Oral discomfort [Unknown]
